FAERS Safety Report 5150410-2 (Version None)
Quarter: 2006Q4

REPORT INFORMATION
  Report Type: 
  Country: None (occurrence: None)
  Receive Date: 20061114
  Receipt Date: 20061030
  Transmission Date: 20070319
  Serious: Yes (Other)
  Sender: FDA-Public Use
  Company Number: FR-ELI_LILLY_AND_COMPANY-FR200611001981

PATIENT
  Age: 75 Year
  Sex: Female

DRUGS (6)
  1. PEMETREXED [Suspect]
     Indication: LUNG NEOPLASM MALIGNANT
     Dosage: 500 MG/M2, OTHER
     Route: 042
  2. GEMZAR [Suspect]
     Indication: LUNG NEOPLASM MALIGNANT
     Dosage: 1250 MG/M2, OTHER
  3. CARBOPLATIN [Concomitant]
     Indication: LUNG NEOPLASM MALIGNANT
  4. FOLIC ACID [Concomitant]
     Indication: PREMEDICATION
     Dosage: 1 MG, DAILY (1/D)
     Route: 048
  5. VITAMIN B COMPLEX CAP [Concomitant]
     Indication: PREMEDICATION
     Dosage: 1000 UNK, UNK
     Route: 030
  6. PREDNISOLONE [Concomitant]
     Dosage: 40 MG, UNK
     Route: 048

REACTIONS (7)
  - ANAEMIA [None]
  - BREAST INDURATION [None]
  - BREAST PAIN [None]
  - DISEASE PROGRESSION [None]
  - FATIGUE [None]
  - NAUSEA [None]
  - RECALL PHENOMENON [None]
